FAERS Safety Report 7179895-7 (Version None)
Quarter: 2010Q4

REPORT INFORMATION
  Report Type: 
  Country: None (occurrence: None)
  Receive Date: 20101208
  Receipt Date: 20101123
  Transmission Date: 20110411
  Serious: Yes (Other)
  Sender: FDA-Public Use
  Company Number: JPI-P-013093

PATIENT
  Age: 58 Year
  Sex: Female

DRUGS (14)
  1. XYREM [Suspect]
     Indication: FIBROMYALGIA
     Dosage: 9 GM (4.5 GM,2 IN 1 D),ORAL ; 10 GM (5 GM,2 IN 1 D),ORAL ; 9 GM (4.5 GM,2 IN 1 D),ORAL
     Route: 048
     Dates: start: 20060501, end: 20061201
  2. XYREM [Suspect]
     Indication: FIBROMYALGIA
     Dosage: 9 GM (4.5 GM,2 IN 1 D),ORAL ; 10 GM (5 GM,2 IN 1 D),ORAL ; 9 GM (4.5 GM,2 IN 1 D),ORAL
     Route: 048
     Dates: start: 20061207
  3. MULTI-VITAMIN [Concomitant]
  4. CALCIUM PLUS D [Concomitant]
  5. IRON [Concomitant]
  6. AMITRIPTYLINE [Concomitant]
  7. CETIRIZINE HCL [Concomitant]
  8. IRBESARTAN [Concomitant]
  9. IRBESARTAN AND HYDROCHLOROTHIAZIDE [Concomitant]
  10. AMLODIPINE BESYLATE [Concomitant]
  11. METOPROLOL SUCCINATE [Concomitant]
  12. OXYBUTYNIN [Concomitant]
  13. TOLTERODINE TARTRATE [Concomitant]
  14. ACETYLSALICYLIC ACID SRT [Concomitant]

REACTIONS (5)
  - CHRONIC MYELOID LEUKAEMIA [None]
  - CONDITION AGGRAVATED [None]
  - FOOT DEFORMITY [None]
  - OSTEOARTHRITIS [None]
  - WEIGHT DECREASED [None]
